FAERS Safety Report 6489895-8 (Version None)
Quarter: 2009Q4

REPORT INFORMATION
  Report Type: 
  Country: None (occurrence: None)
  Receive Date: 20091211
  Receipt Date: 20091204
  Transmission Date: 20100525
  Serious: Yes (Disabling, Other)
  Sender: FDA-Public Use
  Company Number: CH-JNJFOC-20091201748

PATIENT
  Sex: Male

DRUGS (3)
  1. CONCERTA [Suspect]
     Route: 048
  2. CONCERTA [Suspect]
     Indication: ATTENTION DEFICIT/HYPERACTIVITY DISORDER
     Route: 048
  3. PPI [Concomitant]
     Indication: HYPERCHLORHYDRIA
     Route: 048
     Dates: start: 20030101

REACTIONS (2)
  - AGEUSIA [None]
  - ANOSMIA [None]
